FAERS Safety Report 8196345-2 (Version None)
Quarter: 2012Q1

REPORT INFORMATION
  Report Type: 
  Country: None (occurrence: None)
  Receive Date: 20120309
  Receipt Date: 20120307
  Transmission Date: 20120608
  Serious: No
  Sender: FDA-Public Use
  Company Number: US-PFIZER INC-2012061983

PATIENT
  Sex: Female
  Weight: 68.027 kg

DRUGS (12)
  1. CHANTIX [Suspect]
     Indication: SMOKING CESSATION THERAPY
     Dosage: 0.5 MG, DAILY
     Route: 048
     Dates: start: 20090301, end: 20090301
  2. OXYCONTIN [Concomitant]
     Indication: PAIN
     Dosage: 30 MG, 2X/DAY
  3. KLONOPIN [Concomitant]
     Indication: ANXIETY
     Dosage: 1.5 MG IN MORNING AND 3.5 MG IN NIGHT
  4. PROMETHAZINE [Concomitant]
     Indication: NAUSEA
     Dosage: 25 MG, AS NEEDED
  5. FROVA [Concomitant]
     Indication: MIGRAINE
     Dosage: 2.5 MG, DAILY
  6. LEXAPRO [Concomitant]
     Indication: DEPRESSION
     Dosage: 20 MG, DAILY
  7. CELEBREX [Concomitant]
     Indication: ARTHRITIS
     Dosage: 200 MG, DAILY
  8. REQUIP [Concomitant]
     Indication: RESTLESS LEGS SYNDROME
     Dosage: 50 MG, DAILY
  9. TOPROL-XL [Concomitant]
     Indication: HYPERTENSION
     Dosage: 50 MG, DAILY
  10. OXYCODONE [Concomitant]
     Indication: PAIN
     Dosage: 30 MG, 3X/DAY
  11. CHANTIX [Suspect]
     Dosage: UNK
     Route: 048
     Dates: start: 20090301
  12. KLONOPIN [Concomitant]
     Indication: PAIN

REACTIONS (2)
  - VOMITING [None]
  - ABNORMAL DREAMS [None]
